FAERS Safety Report 8229725-7 (Version None)
Quarter: 2012Q1

REPORT INFORMATION
  Report Type: 
  Country: None (occurrence: None)
  Receive Date: 20120322
  Receipt Date: 20120320
  Transmission Date: 20120608
  Serious: Yes (Death, Disabling)
  Sender: FDA-Public Use
  Company Number: US-MERCK-1201USA02846

PATIENT
  Age: 51 Year
  Sex: Male

DRUGS (8)
  1. LACTULOSE [Concomitant]
     Route: 065
  2. TESTIM [Concomitant]
     Route: 065
  3. DIACETYLMORPHINE [Concomitant]
     Route: 042
  4. PREVACID [Concomitant]
     Route: 065
  5. ISENTRESS [Suspect]
     Indication: HIV INFECTION
     Route: 048
     Dates: start: 20110118, end: 20120118
  6. ALDACTONE [Concomitant]
     Route: 065
  7. BACTRIM DS [Concomitant]
     Route: 065
  8. TRUVADA [Concomitant]
     Route: 065

REACTIONS (12)
  - ORAL MUCOSAL ERYTHEMA [None]
  - SWOLLEN TONGUE [None]
  - ORAL DISORDER [None]
  - MOUTH ULCERATION [None]
  - ACUTE HEPATIC FAILURE [None]
  - BLISTER [None]
  - MUCOSAL INFLAMMATION [None]
  - LARYNGITIS [None]
  - DISCOMFORT [None]
  - RASH [None]
  - RASH MACULO-PAPULAR [None]
  - ENDOCARDITIS STAPHYLOCOCCAL [None]
